FAERS Safety Report 15740473 (Version 1)
Quarter: 2018Q4

REPORT INFORMATION
  Report Type: Spontaneous
  Country: DE (occurrence: DE)
  Receive Date: 20181219
  Receipt Date: 20181219
  Transmission Date: 20190205
  Serious: Yes (Other)
  Sender: FDA-Public Use
  Company Number: DE-PFIZER INC-2018515292

PATIENT
  Age: 39 Year
  Sex: Male

DRUGS (7)
  1. DISTRANEURIN [Suspect]
     Active Substance: CLOMETHIAZOLE
     Dosage: 384 MG, 1X/DAY
     Dates: start: 19991208, end: 19991210
  2. CATAPRESAN [Suspect]
     Active Substance: CLONIDINE
     Dosage: 150 UG, 1X/DAY
     Dates: start: 19991207, end: 19991210
  3. LEPONEX [Suspect]
     Active Substance: CLOZAPINE
     Dosage: 100 MG, 1X/DAY
     Dates: start: 19991211, end: 19991222
  4. TEGRETAL [Suspect]
     Active Substance: CARBAMAZEPINE
     Dosage: 600 MG, 1X/DAY
     Dates: start: 19991207, end: 19991210
  5. TAVOR (LORAZEPAM) [Suspect]
     Active Substance: LORAZEPAM
     Dosage: 3 MG, 1X/DAY
     Dates: start: 19991210, end: 19991226
  6. LEPONEX [Suspect]
     Active Substance: CLOZAPINE
     Dosage: 50 MG, 1X/DAY
     Dates: start: 19991210, end: 19991210
  7. DEPOT-INSULIN [Concomitant]
     Active Substance: INSULIN NOS
     Dosage: UNK

REACTIONS (4)
  - Blood pressure systolic increased [Recovered/Resolved]
  - Diabetes mellitus [Recovered/Resolved]
  - White blood cell count increased [Unknown]
  - Tachycardia [Unknown]

NARRATIVE: CASE EVENT DATE: 19991208
